FAERS Safety Report 5494761-0 (Version None)
Quarter: 2007Q4

REPORT INFORMATION
  Report Type: 
  Country: None (occurrence: None)
  Receive Date: 20071023
  Receipt Date: 20071023
  Transmission Date: 20080405
  Serious: Yes (Hospitalization, Disabling, Other)
  Sender: FDA-Public Use
  Company Number: None

PATIENT
  Age: 21 Year
  Sex: Female
  Weight: 56.6996 kg

DRUGS (3)
  1. ZOLOFT [Suspect]
     Indication: DEPRESSION
  2. ZOLOFT [Suspect]
     Indication: SCHIZOAFFECTIVE DISORDER
  3. GEODON [Suspect]
     Indication: MANIA
     Dosage: 80MGS X 2

REACTIONS (2)
  - MANIA [None]
  - THERAPY CESSATION [None]
